FAERS Safety Report 5332661-7 (Version None)
Quarter: 2007Q2

REPORT INFORMATION
  Report Type: 
  Country: None (occurrence: None)
  Receive Date: 20070523
  Receipt Date: 20070515
  Transmission Date: 20071010
  Serious: Yes (Life-Threatening, Other)
  Sender: FDA-Public Use
  Company Number: JP-ABBOTT-06P-087-0345978-00

PATIENT
  Sex: Male

DRUGS (18)
  1. KALETRA [Suspect]
     Indication: HIV INFECTION
     Route: 048
     Dates: start: 20040927, end: 20041018
  2. NEVIRAPINE [Suspect]
     Indication: HIV INFECTION
     Route: 048
     Dates: start: 20040913, end: 20040926
  3. LAMIVUDINE [Suspect]
     Indication: HIV INFECTION
     Route: 048
     Dates: start: 20040913, end: 20041018
  4. LAMIVUDINE [Suspect]
     Route: 048
     Dates: start: 20050112, end: 20050404
  5. STAVUDINE [Suspect]
     Indication: HIV INFECTION
     Route: 048
     Dates: start: 20040913, end: 20041018
  6. STAVUDINE [Suspect]
     Route: 048
     Dates: start: 20050309, end: 20050404
  7. LAMIVUDINE + ZIDOVUDINE [Suspect]
     Indication: HIV INFECTION
     Dates: start: 20041019, end: 20050112
  8. PREDNISOLONE SODIUM SUCCINATE INJ [Suspect]
     Indication: DRUG ERUPTION
     Route: 042
     Dates: start: 20040923, end: 20040923
  9. PREDNISOLONE SODIUM SUCCINATE INJ [Suspect]
     Route: 042
     Dates: start: 20040924, end: 20040926
  10. EFAVIRENZ [Concomitant]
     Indication: HIV INFECTION
     Route: 048
     Dates: start: 20041019, end: 20050404
  11. TENOFOVIR [Concomitant]
     Indication: HIV INFECTION
     Route: 048
     Dates: start: 20050112, end: 20050308
  12. BACTRIM [Concomitant]
     Indication: ANTIFUNGAL PROPHYLAXIS
     Route: 048
     Dates: start: 20040701, end: 20040926
  13. BACTRIM [Concomitant]
     Route: 048
     Dates: start: 20041112, end: 20050404
  14. DOXORUBICIN HCL [Concomitant]
     Indication: KAPOSI'S SARCOMA
     Route: 042
     Dates: start: 20041204, end: 20050210
  15. CLARITHROMYCIN [Concomitant]
     Indication: OPPORTUNISTIC INFECTION PROPHYLAXIS
     Route: 048
     Dates: start: 20040530, end: 20040622
  16. CLARITHROMYCIN [Concomitant]
     Indication: MYCOBACTERIA TEST
     Route: 048
     Dates: start: 20040623, end: 20050404
  17. ETHAMBUTOL HYDROCHLORIDE [Concomitant]
     Indication: MYCOBACTERIUM AVIUM COMPLEX INFECTION
     Route: 048
     Dates: start: 20050401, end: 20050404
  18. CIPROFLOXACIN [Concomitant]
     Indication: MYCOBACTERIUM AVIUM COMPLEX INFECTION
     Route: 048
     Dates: start: 20050401, end: 20050404

REACTIONS (3)
  - ANAEMIA [None]
  - DRUG ERUPTION [None]
  - GLUCOSE TOLERANCE IMPAIRED [None]
